FAERS Safety Report 21341863 (Version 1)
Quarter: 2022Q3

REPORT INFORMATION
  Report Type: Spontaneous
  Country: US (occurrence: US)
  Receive Date: 20220916
  Receipt Date: 20220916
  Transmission Date: 20221026
  Serious: Yes (Other)
  Sender: FDA-Public Use
  Company Number: US-TEVA-2022-US-2072833

PATIENT
  Age: 80 Year
  Sex: Female
  Weight: 52.16 kg

DRUGS (3)
  1. ESTRADIOL [Suspect]
     Active Substance: ESTRADIOL
     Indication: Withdrawal syndrome
     Route: 065
     Dates: start: 202206
  2. MEDROXYPROGESTERONE [Suspect]
     Active Substance: MEDROXYPROGESTERONE
     Indication: Withdrawal syndrome
     Dosage: 2.5 MILLIGRAM DAILY; LITTLE WHITE ROUND TABLET
     Route: 048
  3. ESTRADIOL [Suspect]
     Active Substance: ESTRADIOL
     Indication: Discharge
     Route: 067

REACTIONS (4)
  - Thrombosis [Recovered/Resolved]
  - Discharge [Not Recovered/Not Resolved]
  - Blue toe syndrome [Recovering/Resolving]
  - Drug ineffective [Unknown]

NARRATIVE: CASE EVENT DATE: 20220101
